FAERS Safety Report 24574474 (Version 1)
Quarter: 2024Q4

REPORT INFORMATION
  Report Type: Spontaneous
  Country: GB (occurrence: GB)
  Receive Date: 20241104
  Receipt Date: 20241104
  Transmission Date: 20250115
  Serious: Yes (Death, Other)
  Sender: AUROBINDO
  Company Number: GB-KRKA-GB2024K15789SPO

PATIENT
  Age: 44 Year
  Sex: Female

DRUGS (5)
  1. DULOXETINE [Suspect]
     Active Substance: DULOXETINE
     Indication: Product used for unknown indication
     Dosage: 60 MILLIGRAM, ONCE A DAY (60 MG, PER DAY)
     Route: 065
  2. VENLAFAXINE [Suspect]
     Active Substance: VENLAFAXINE HYDROCHLORIDE
     Indication: Product used for unknown indication
     Dosage: 150 MILLIGRAM, ONCE A DAY (150 MG, PER DAY)
     Route: 048
  3. VENLAFAXINE [Suspect]
     Active Substance: VENLAFAXINE HYDROCHLORIDE
     Dosage: 75 MILLIGRAM, ONCE A DAY (75 MG, 1X PER DAY)
     Route: 065
  4. SODIUM NITRATE [Suspect]
     Active Substance: SODIUM NITRATE
     Indication: Product used for unknown indication
     Dosage: UNK
     Route: 065
  5. VENLAFAXINE HYDROCHLORIDE [Suspect]
     Active Substance: VENLAFAXINE HYDROCHLORIDE
     Indication: Product used for unknown indication
     Dosage: 37.5 MILLIGRAM, ONCE A DAY (37.5 MG, 1X PER DAY)
     Route: 065

REACTIONS (4)
  - Completed suicide [Fatal]
  - Suicidal ideation [Fatal]
  - Intentional overdose [Fatal]
  - Withdrawal syndrome [Fatal]

NARRATIVE: CASE EVENT DATE: 20240501
